FAERS Safety Report 15053963 (Version 1)
Quarter: 2018Q2

REPORT INFORMATION
  Report Type: Spontaneous
  Country: US (occurrence: US)
  Receive Date: 20180622
  Receipt Date: 20180622
  Transmission Date: 20180711
  Serious: No
  Sender: FDA-Public Use
  Company Number: US-AMNEAL PHARMACEUTICALS-2018AMN00239

PATIENT
  Age: 68 Year
  Sex: Female

DRUGS (2)
  1. VAGIFEM [Concomitant]
     Active Substance: ESTRADIOL
     Dosage: UNK
     Route: 067
  2. ESTRADIOL. [Suspect]
     Active Substance: ESTRADIOL
     Dosage: UNK, 2X/WEEK
     Route: 067

REACTIONS (3)
  - Drug ineffective [Recovered/Resolved]
  - Vaginal discharge [Recovered/Resolved]
  - Vulvovaginal dryness [Recovered/Resolved]
